FAERS Safety Report 4355999-9 (Version None)
Quarter: 2004Q2

REPORT INFORMATION
  Report Type: 
  Country: None (occurrence: None)
  Receive Date: 20040507
  Receipt Date: 20040507
  Transmission Date: 20050107
  Serious: Yes (Hospitalization)
  Sender: FDA-Public Use
  Company Number: None

PATIENT
  Age: 55 Year
  Sex: Male
  Weight: 113.3 kg

DRUGS (3)
  1. KETOROLAC TROMETHAMINE [Suspect]
     Dosage: 30 MG / 1 ML IM
     Route: 030
     Dates: start: 20031217, end: 20031217
  2. NSAIDS [Suspect]
  3. ENOXAPARIN SODIUM [Suspect]
     Dosage: 40 MG/ 0.4 SC
     Route: 058
     Dates: start: 20031217, end: 20031217

REACTIONS (1)
  - GASTROINTESTINAL HAEMORRHAGE [None]
